FAERS Safety Report 12651027 (Version 1)
Quarter: 2016Q3

REPORT INFORMATION
  Report Type: Spontaneous
  Country: US (occurrence: US)
  Receive Date: 20160815
  Receipt Date: 20160815
  Transmission Date: 20161109
  Serious: No
  Sender: FDA-Public Use
  Company Number: US-JAZZ-2016-US-005149

PATIENT
  Sex: Female

DRUGS (33)
  1. ALLEGRA ALLERGY [Concomitant]
     Active Substance: FEXOFENADINE HYDROCHLORIDE
  2. ZANTAC [Concomitant]
     Active Substance: RANITIDINE HYDROCHLORIDE
  3. COMBIGAN [Concomitant]
     Active Substance: BRIMONIDINE TARTRATE\TIMOLOL MALEATE
  4. ACTICLATE [Concomitant]
     Active Substance: DOXYCYCLINE HYCLATE
  5. TRAMADOL HCL [Concomitant]
     Active Substance: TRAMADOL HYDROCHLORIDE
  6. VALTREX [Concomitant]
     Active Substance: VALACYCLOVIR HYDROCHLORIDE
  7. VITAMIN D2 [Concomitant]
     Active Substance: ERGOCALCIFEROL
  8. LYRICA [Concomitant]
     Active Substance: PREGABALIN
  9. LASIX [Concomitant]
     Active Substance: FUROSEMIDE
  10. MOBIC [Concomitant]
     Active Substance: MELOXICAM
  11. XYREM [Suspect]
     Active Substance: SODIUM OXYBATE
     Dosage: 4.5 G, BID
     Route: 048
     Dates: start: 201402
  12. PRED FORTE [Concomitant]
     Active Substance: PREDNISOLONE ACETATE
  13. RESTASIS [Concomitant]
     Active Substance: CYCLOSPORINE
  14. FLUOXETINE HCL [Concomitant]
     Active Substance: FLUOXETINE HYDROCHLORIDE
  15. TRAMADOL ER [Concomitant]
     Active Substance: TRAMADOL HYDROCHLORIDE
  16. FOCALIN XR [Concomitant]
     Active Substance: DEXMETHYLPHENIDATE HYDROCHLORIDE
  17. NORITATE [Concomitant]
     Active Substance: METRONIDAZOLE
  18. TRAZODONE [Concomitant]
     Active Substance: TRAZODONE HYDROCHLORIDE
  19. MIRAPEX [Concomitant]
     Active Substance: PRAMIPEXOLE DIHYDROCHLORIDE
  20. NEXIUM [Concomitant]
     Active Substance: ESOMEPRAZOLE MAGNESIUM
  21. ZYRTEC [Concomitant]
     Active Substance: CETIRIZINE HYDROCHLORIDE
  22. XYREM [Suspect]
     Active Substance: SODIUM OXYBATE
     Indication: HYPERSOMNIA
     Dosage: 2.25 G, BID
     Route: 048
     Dates: start: 201401, end: 201401
  23. ARMOUR THYROID [Concomitant]
     Active Substance: THYROID, PORCINE
  24. ATORVASTATIN [Concomitant]
     Active Substance: ATORVASTATIN
  25. BENADRYL ALLERGY [Concomitant]
     Active Substance: DIPHENHYDRAMINE HYDROCHLORIDE
  26. CYMBALTA [Concomitant]
     Active Substance: DULOXETINE HYDROCHLORIDE
  27. LOSARTAN POTASSIUM. [Concomitant]
     Active Substance: LOSARTAN POTASSIUM
  28. VESICARE [Concomitant]
     Active Substance: SOLIFENACIN SUCCINATE
  29. XYREM [Suspect]
     Active Substance: SODIUM OXYBATE
     Dosage: DOSE ADJUSTMENTS
     Route: 048
     Dates: start: 2014, end: 2014
  30. CLARITIN [Concomitant]
     Active Substance: LORATADINE
  31. HYDROXYZINE HCL [Concomitant]
     Active Substance: HYDROXYZINE HYDROCHLORIDE
  32. CLONAZEPAM. [Concomitant]
     Active Substance: CLONAZEPAM
  33. PERCOCET [Concomitant]
     Active Substance: ACETAMINOPHEN\OXYCODONE HYDROCHLORIDE

REACTIONS (1)
  - Hypertension [Recovering/Resolving]
